FAERS Safety Report 17825805 (Version 1)
Quarter: 2020Q2

REPORT INFORMATION
  Report Type: Spontaneous
  Country: CN (occurrence: CN)
  Receive Date: 20200526
  Receipt Date: 20200526
  Transmission Date: 20200714
  Serious: Yes (Other)
  Sender: FDA-Public Use
  Company Number: CN-PFIZER INC-2020205066

PATIENT
  Sex: Male

DRUGS (1)
  1. INLYTA [Suspect]
     Active Substance: AXITINIB
     Indication: THERAPEUTIC PROCEDURE
     Dosage: 1.000 MG, 2X/DAY
     Route: 048
     Dates: start: 20190501, end: 20200511

REACTIONS (4)
  - Pain of skin [Recovering/Resolving]
  - Skin discolouration [Recovering/Resolving]
  - Skin exfoliation [Recovering/Resolving]
  - Diarrhoea [Recovering/Resolving]

NARRATIVE: CASE EVENT DATE: 20200426
